FAERS Safety Report 9904187 (Version 2)
Quarter: 2014Q1

REPORT INFORMATION
  Report Type: Spontaneous
  Country: FR (occurrence: FR)
  Receive Date: 20140218
  Receipt Date: 20140224
  Transmission Date: 20141002
  Serious: Yes (Hospitalization)
  Sender: FDA-Public Use
  Company Number: FR-ROCHE-1350967

PATIENT
  Age: 14 Year
  Sex: Female

DRUGS (5)
  1. APRANAX [Suspect]
     Indication: JUVENILE IDIOPATHIC ARTHRITIS
     Route: 048
     Dates: start: 201210, end: 2013
  2. HUMIRA [Suspect]
     Indication: JUVENILE IDIOPATHIC ARTHRITIS
     Route: 058
     Dates: start: 201002, end: 201202
  3. HUMIRA [Suspect]
     Dosage: 24 MG/M2
     Route: 058
     Dates: start: 201207
  4. HUMIRA [Suspect]
     Route: 058
     Dates: start: 201212
  5. METHOTREXATE [Concomitant]
     Indication: JUVENILE IDIOPATHIC ARTHRITIS
     Route: 065
     Dates: start: 201002, end: 201008

REACTIONS (2)
  - Renal colic [Recovered/Resolved]
  - Nephrolithiasis [Recovered/Resolved with Sequelae]
